FAERS Safety Report 26113689 (Version 1)
Quarter: 2025Q4

REPORT INFORMATION
  Report Type: Spontaneous
  Country: US (occurrence: US)
  Receive Date: 20251202
  Receipt Date: 20251202
  Transmission Date: 20260117
  Serious: Yes (Other)
  Sender: AMGEN
  Company Number: US-AMGEN-USASP2025235309

PATIENT
  Age: 50 Year
  Sex: Female

DRUGS (3)
  1. PREDNISONE [Suspect]
     Active Substance: PREDNISONE
     Indication: Secondary adrenocortical insufficiency
     Dosage: 5 MILLIGRAM, QD
     Route: 065
  2. Carboplatin;Etoposide [Concomitant]
     Indication: Ovarian granulosa cell tumour
     Dosage: UNK
     Dates: start: 2020
  3. DEXAMETHASONE [Concomitant]
     Active Substance: DEXAMETHASONE
     Indication: Headache

REACTIONS (1)
  - Atypical teratoid/rhabdoid tumour of CNS [Unknown]
